FAERS Safety Report 5118243-0 (Version None)
Quarter: 2006Q4

REPORT INFORMATION
  Report Type: 
  Country: None (occurrence: None)
  Receive Date: 20061002
  Receipt Date: 20060703
  Transmission Date: 20070319
  Serious: No
  Sender: FDA-Public Use
  Company Number: US-BRISTOL-MYERS SQUIBB COMPANY-13431184

PATIENT
  Age: 68 Year
  Sex: Female
  Weight: 82 kg

DRUGS (6)
  1. ORENCIA [Suspect]
     Indication: RHEUMATOID ARTHRITIS
     Route: 042
  2. ENBREL [Concomitant]
  3. FOSAMAX [Concomitant]
  4. REVIA [Concomitant]
  5. LOTENSIN [Concomitant]
  6. TRIAMTERENE [Concomitant]

REACTIONS (5)
  - ANOREXIA [None]
  - GAIT DISTURBANCE [None]
  - HYPOTENSION [None]
  - PAIN [None]
  - WEIGHT DECREASED [None]
